FAERS Safety Report 8898106 (Version 1)
Quarter: 2012Q4

REPORT INFORMATION
  Report Type: 
  Country: US (occurrence: US)
  Receive Date: 20121108
  Receipt Date: 20121108
  Transmission Date: 20130627
  Serious: No
  Sender: FDA-Public Use
  Company Number: US-AMGEN-USASP2012030462

PATIENT
  Sex: Female

DRUGS (6)
  1. ENBREL [Suspect]
     Indication: PRODUCT USED FOR UNKNOWN INDICATION
     Dosage: 25 mg, 2 times/wk
  2. MOBIC [Concomitant]
     Dosage: 15 mg, UNK
  3. METHOTREXATE [Concomitant]
     Dosage: 2.5 mg, UNK
  4. CLARITIN                           /00413701/ [Concomitant]
     Dosage: 10 mg, UNK
  5. BENTYL [Concomitant]
     Dosage: 20 mg, UNK
  6. TYLENOL /00020001/ [Concomitant]
     Dosage: 650 mg, UNK

REACTIONS (1)
  - Pneumonia [Unknown]
